FAERS Safety Report 17678870 (Version 2)
Quarter: 2020Q2

REPORT INFORMATION
  Report Type: Report from Study
  Country: FR (occurrence: FR)
  Receive Date: 20200417
  Receipt Date: 20200425
  Transmission Date: 20200714
  Serious: Yes (Life-Threatening, Other)
  Sender: FDA-Public Use
  Company Number: FR-ADVANZ PHARMA-202004002849

PATIENT

DRUGS (4)
  1. MORPHINE [Suspect]
     Active Substance: MORPHINE
  2. HYDROXYCHLOROQUINE [Suspect]
     Active Substance: HYDROXYCHLOROQUINE
     Dosage: UNK
     Route: 048
     Dates: start: 20200401
  3. MIDAZOLAM. [Suspect]
     Active Substance: MIDAZOLAM
     Indication: PALLIATIVE CARE
     Dosage: UNK
     Route: 042
     Dates: start: 20200406
  4. HYDROXYCHLOROQUINE [Suspect]
     Active Substance: HYDROXYCHLOROQUINE
     Indication: CORONAVIRUS INFECTION
     Dosage: 200 MG, QD, FILM COATED TABLET
     Route: 048
     Dates: start: 20200331

REACTIONS (4)
  - Condition aggravated [Recovering/Resolving]
  - Off label use [Unknown]
  - Coma [Recovering/Resolving]
  - Acute respiratory distress syndrome [Not Recovered/Not Resolved]

NARRATIVE: CASE EVENT DATE: 20200401
